FAERS Safety Report 5624558-X (Version None)
Quarter: 2008Q1

REPORT INFORMATION
  Report Type: 
  Country: None (occurrence: None)
  Receive Date: 20080213
  Receipt Date: 20080130
  Transmission Date: 20080703
  Serious: Yes (Other)
  Sender: FDA-Public Use
  Company Number: BE-AMGEN-US263529

PATIENT
  Age: 58 Year
  Sex: Male
  Weight: 95 kg

DRUGS (5)
  1. ENBREL [Suspect]
     Indication: PSORIASIS
     Route: 058
     Dates: start: 20060322, end: 20080109
  2. LORMETAZEPAM [Concomitant]
     Indication: INITIAL INSOMNIA
     Dosage: NOT PROVIDED
     Route: 048
  3. LYSANXIA [Concomitant]
     Indication: DEPRESSION
     Dosage: NOT PROVIDED
     Route: 048
  4. LIPITOR [Concomitant]
     Indication: HYPERCHOLESTEROLAEMIA
     Dosage: 40 MG/DAY
     Route: 048
  5. CYMBALTA [Concomitant]
     Indication: DEPRESSION
     Dosage: NOT PROVIDED
     Route: 048

REACTIONS (1)
  - HEPATIC ENZYME INCREASED [None]
